FAERS Safety Report 11823829 (Version 1)
Quarter: 2015Q4

REPORT INFORMATION
  Report Type: Spontaneous
  Country: US (occurrence: US)
  Receive Date: 20151210
  Receipt Date: 20151210
  Transmission Date: 20160305
  Serious: No
  Sender: FDA-Public Use
  Company Number: US-PERRIGO-15US000271

PATIENT
  Age: 68 Year
  Sex: Female
  Weight: 90.7 kg

DRUGS (6)
  1. CLOBETASOL PROPIONATE RX 0.05% 2P1 [Suspect]
     Active Substance: CLOBETASOL PROPIONATE
     Indication: PSORIASIS
     Dosage: ONE SMALL APPLICATION TO TOP OF FEET, BID
     Route: 061
     Dates: start: 2014, end: 201411
  2. ASPIRIN. [Concomitant]
     Active Substance: ASPIRIN
     Indication: CARDIOVASCULAR EVENT PROPHYLAXIS
     Dosage: 81 MG
     Route: 065
  3. CLARITIN [Concomitant]
     Active Substance: LORATADINE
     Indication: HYPERSENSITIVITY
     Dosage: UNK
     Route: 065
  4. MAXZIDE [Concomitant]
     Active Substance: HYDROCHLOROTHIAZIDE\TRIAMTERENE
     Indication: HYPERTENSION
     Dosage: UNK
     Route: 065
  5. CLOBETASOL PROPIONATE RX 0.05% 2P1 [Suspect]
     Active Substance: CLOBETASOL PROPIONATE
     Dosage: ONE SMALL APPLICATION TO TOP OF FEET, BID
     Route: 061
     Dates: start: 201412
  6. CLOBETASOL PROPIONATE RX 0.05% 2P1 [Suspect]
     Active Substance: CLOBETASOL PROPIONATE
     Dosage: ONE SMALL APPLICATION TO TOP OF FEET, BID
     Route: 061
     Dates: start: 201411, end: 201411

REACTIONS (3)
  - Application site irritation [Recovered/Resolved]
  - Application site pain [Recovered/Resolved]
  - Condition aggravated [Recovered/Resolved]

NARRATIVE: CASE EVENT DATE: 201411
